FAERS Safety Report 9579916 (Version 1)
Quarter: 2013Q3

REPORT INFORMATION
  Report Type: Spontaneous
  Country: US (occurrence: None)
  Receive Date: 20130930
  Receipt Date: 20130930
  Transmission Date: 20140515
  Serious: No
  Sender: FDA-Public Use
  Company Number: None

PATIENT
  Age: 8 Year
  Sex: Male
  Weight: 41.73 kg

DRUGS (1)
  1. METHYLPHENIDATE [Suspect]
     Indication: ATTENTION DEFICIT/HYPERACTIVITY DISORDER
     Dosage: 1 PILL
     Route: 048
     Dates: start: 20130919, end: 20130926

REACTIONS (6)
  - Product quality issue [None]
  - Drug effect decreased [None]
  - Appetite disorder [None]
  - Tic [None]
  - Mood swings [None]
  - Insomnia [None]
